FAERS Safety Report 17471074 (Version 1)
Quarter: 2020Q1

REPORT INFORMATION
  Report Type: Spontaneous
  Country: US (occurrence: US)
  Receive Date: 20200227
  Receipt Date: 20200227
  Transmission Date: 20200409
  Serious: No
  Sender: FDA-Public Use
  Company Number: NVSC2020US054887

PATIENT
  Age: 87 Year
  Sex: Male

DRUGS (2)
  1. MEKINIST [Suspect]
     Active Substance: TRAMETINIB DIMETHYL SULFOXIDE
     Indication: MALIGNANT MELANOMA
     Dosage: 2 MG, BID
     Route: 048
     Dates: start: 20200131
  2. TAFINLAR [Suspect]
     Active Substance: DABRAFENIB MESYLATE
     Indication: MALIGNANT MELANOMA
     Dosage: 75 MG, QD
     Route: 048
     Dates: start: 20200131

REACTIONS (6)
  - Dizziness [Unknown]
  - Somnolence [Unknown]
  - Pruritus [Unknown]
  - Fatigue [Unknown]
  - Pyrexia [Unknown]
  - Fall [Unknown]

NARRATIVE: CASE EVENT DATE: 202002
